FAERS Safety Report 6071259-2 (Version None)
Quarter: 2009Q1

REPORT INFORMATION
  Report Type: 
  Country: None (occurrence: None)
  Receive Date: 20090209
  Receipt Date: 20090128
  Transmission Date: 20090719
  Serious: Yes (Other)
  Sender: FDA-Public Use
  Company Number: US-PFIZER INC-2009164309

PATIENT
  Sex: Female
  Weight: 61.224 kg

DRUGS (13)
  1. CELEBREX [Interacting]
     Indication: ANKYLOSING SPONDYLITIS
     Dosage: 200 MG, 1X/DAY
     Route: 048
     Dates: start: 20070601
  2. LYRICA [Interacting]
     Dosage: 50 MG, 2X/DAY
     Route: 048
     Dates: start: 20070601
  3. CLINDAMYCIN PHOSPHATE [Interacting]
     Indication: LOCALISED INFECTION
     Dosage: 100 MG, 3X/DAY
     Route: 048
  4. HUMIRA [Suspect]
     Indication: ANKYLOSING SPONDYLITIS
     Dosage: 1 IN 2 WK
     Dates: start: 20080401
  5. VICODIN [Suspect]
     Indication: PAIN
     Dosage: 5/500, 3 IN 1 D, AS REQUIRED
     Route: 048
  6. LEXAPRO [Interacting]
     Indication: DEPRESSION
     Dosage: 20 MG, 1X/DAY
     Route: 048
     Dates: start: 20071023
  7. CHLORMEZANONE [Interacting]
  8. AMITRIPTYLINE HCL [Interacting]
     Indication: MIGRAINE PROPHYLAXIS
     Dosage: 75 MG, 1X/DAY AT NIGHT
     Route: 048
     Dates: start: 20070501
  9. RIZATRIPTAN BENZOATE [Interacting]
     Indication: HEADACHE
     Dosage: 10 MG, 1X/DAY
     Route: 048
     Dates: start: 20070501
  10. CYCLOBENZAPRINE HCL [Interacting]
     Indication: MUSCLE SPASMS
     Dosage: 10 MG, EVERY 8 HOURS AS REQUIRED
     Route: 048
     Dates: start: 20070101
  11. BUPROPION HCL [Interacting]
     Indication: DEPRESSION
     Dosage: 150 MG, 1X/DAY
     Route: 048
     Dates: start: 20080110
  12. MINOCYCLINE HCL [Interacting]
     Indication: ACNE
     Dosage: 100 MG, 2X/DAY
     Route: 048
     Dates: start: 20080313
  13. TETANUS ANTITOXIN [Suspect]
     Indication: TETANUS IMMUNISATION
     Dosage: ONCE
     Route: 030
     Dates: start: 20080701, end: 20080701

REACTIONS (11)
  - ASTHENIA [None]
  - CONFUSIONAL STATE [None]
  - DIZZINESS [None]
  - DRUG INTERACTION [None]
  - FEELING ABNORMAL [None]
  - LIMB INJURY [None]
  - LOCALISED INFECTION [None]
  - LOSS OF CONSCIOUSNESS [None]
  - PAIN IN EXTREMITY [None]
  - TREMOR [None]
  - WITHDRAWAL SYNDROME [None]
